FAERS Safety Report 10533666 (Version 1)
Quarter: 2014Q4

REPORT INFORMATION
  Report Type: Spontaneous
  Country: CN (occurrence: None)
  Receive Date: 20141020
  Receipt Date: 20141020
  Transmission Date: 20150529
  Serious: Yes (Life-Threatening, Hospitalization, Other)
  Sender: FDA-Public Use
  Company Number: 2014283320

PATIENT
  Age: 80 Year
  Sex: Female
  Weight: 65 kg

DRUGS (2)
  1. CILOSTAZOL (CILOSTAZOL) TABLET [Concomitant]
  2. FRAGMIN [Suspect]
     Active Substance: DALTEPARIN SODIUM
     Indication: COAGULOPATHY
     Route: 058
     Dates: start: 20140510, end: 20140513

REACTIONS (8)
  - Condition aggravated [None]
  - Haemoglobin decreased [None]
  - Gastrointestinal haemorrhage [None]
  - Ileus paralytic [None]
  - Haematochezia [None]
  - Dizziness [None]
  - Intra-abdominal haematoma [None]
  - Ecchymosis [None]

NARRATIVE: CASE EVENT DATE: 20140513
